FAERS Safety Report 10085611 (Version 6)
Quarter: 2014Q3

REPORT INFORMATION
  Report Type: Spontaneous
  Country: US (occurrence: US)
  Receive Date: 20140418
  Receipt Date: 20140804
  Transmission Date: 20150326
  Serious: Yes (Other)
  Sender: FDA-Public Use
  Company Number: US-MERCK-1404USA007435

PATIENT
  Age: 25 Year
  Sex: Female

DRUGS (10)
  1. ISENTRESS [Suspect]
     Active Substance: RALTEGRAVIR POTASSIUM
     Indication: ANTIVIRAL TREATMENT
     Dosage: 800 MG/DAY, COURSE 1
     Route: 048
     Dates: end: 20130723
  2. NORVIR [Suspect]
     Active Substance: RITONAVIR
     Indication: ANTIVIRAL TREATMENT
     Dosage: 100 MG/DAY, COURSE 1
     Route: 048
     Dates: start: 20130723
  3. RETROVIR [Suspect]
     Active Substance: ZIDOVUDINE
     Indication: ANTIVIRAL TREATMENT
     Dosage: COURSE 1: 2 MG/KG/HR
     Route: 042
     Dates: start: 20131014, end: 20131014
  4. FOLIC ACID. [Concomitant]
     Active Substance: FOLIC ACID
  5. RETROVIR [Suspect]
     Active Substance: ZIDOVUDINE
     Dosage: COURSE 2: 1 MG/KG/HR
     Route: 042
     Dates: start: 20131014, end: 20131014
  6. TRUVADA [Suspect]
     Active Substance: EMTRICITABINE\TENOFOVIR DISOPROXIL FUMARATE
     Indication: ANTIVIRAL TREATMENT
     Dosage: 1 DF, QD, COURSE 1
     Route: 048
  7. SULFAMETHOXAZOLE (+) TRIMETHOPRIM [Concomitant]
     Active Substance: SULFAMETHOXAZOLE\TRIMETHOPRIM
  8. REYATAZ [Suspect]
     Active Substance: ATAZANAVIR SULFATE
     Indication: ANTIVIRAL TREATMENT
     Dosage: 300 MG/DAY, COURSE 1
     Route: 048
     Dates: start: 20130723
  9. METRONIDAZOLE. [Concomitant]
     Active Substance: METRONIDAZOLE
  10. PENTAMIDINE ISETHIONATE [Concomitant]
     Active Substance: PENTAMIDINE ISETHIONATE

REACTIONS (5)
  - Premature delivery [Unknown]
  - Pericardial excision [Unknown]
  - Pericardial effusion [Unknown]
  - Pericarditis [Unknown]
  - Maternal exposure before pregnancy [Recovered/Resolved]

NARRATIVE: CASE EVENT DATE: 20131014
